FAERS Safety Report 7243057-5 (Version None)
Quarter: 2011Q1

REPORT INFORMATION
  Report Type: 
  Country: None (occurrence: None)
  Receive Date: 20110125
  Receipt Date: 20110119
  Transmission Date: 20110831
  Serious: Yes (Other)
  Sender: FDA-Public Use
  Company Number: US-JNJFOC-20101203878

PATIENT
  Sex: Female

DRUGS (2)
  1. MANY OTHER UNSPECIFIED MEDICATIONS [Concomitant]
     Indication: NEOPLASM MALIGNANT
  2. MYLANTA MAXIMUM STRENGTH CHERRY [Suspect]
     Indication: DYSPEPSIA
     Route: 048

REACTIONS (3)
  - PRODUCT QUALITY ISSUE [None]
  - PROCTALGIA [None]
  - HAEMATOCHEZIA [None]
